FAERS Safety Report 4596802-1 (Version None)
Quarter: 2005Q1

REPORT INFORMATION
  Report Type: 
  Country: None (occurrence: None)
  Receive Date: 20050302
  Receipt Date: 20040831
  Transmission Date: 20050727
  Serious: Yes (Death, Hospitalization, Other)
  Sender: FDA-Public Use
  Company Number: GBWYE989219AUG04

PATIENT
  Sex: Female
  Weight: 50 kg

DRUGS (9)
  1. ENBREL [Suspect]
     Indication: RHEUMATOID ARTHRITIS
     Route: 058
     Dates: start: 20040112, end: 20040809
  2. METHOTREXATE [Concomitant]
  3. HYDROXYCHLOROQUINE SULFATE [Concomitant]
  4. PARACETAMOL [Concomitant]
  5. DIDRONEL [Concomitant]
  6. ALENDRONATE SODIUM [Concomitant]
  7. ETHINYL ESTRADIOL TAB [Concomitant]
  8. NORGESTIMATE [Concomitant]
  9. DIHYDROCODEINE [Concomitant]

REACTIONS (5)
  - BLOOD ALKALINE PHOSPHATASE INCREASED [None]
  - BREAST CANCER FEMALE [None]
  - BREAST CANCER METASTATIC [None]
  - DEATH [None]
  - HEPATIC NEOPLASM MALIGNANT [None]
